FAERS Safety Report 17970288 (Version 2)
Quarter: 2020Q3

REPORT INFORMATION
  Report Type: Spontaneous
  Country: DE (occurrence: DE)
  Receive Date: 20200702
  Receipt Date: 20200812
  Transmission Date: 20201103
  Serious: Yes (Hospitalization)
  Sender: FDA-Public Use
  Company Number: DE-CELLTRION INC.-2020DE023774

PATIENT

DRUGS (8)
  1. VITAMIN D [ERGOCALCIFEROL] [Concomitant]
     Active Substance: ERGOCALCIFEROL
     Dosage: 1000 IE ONCE PER DAY
  2. REMSIMA [Suspect]
     Active Substance: INFLIXIMAB
     Dosage: INFUSION ASSOCIATED WITH SECOND EPISODE OF PLEURAL EFFUSION AND PERICARDIAL EFFUSION
     Dates: start: 20200522
  3. FLUTIDE [FLUTICASONE PROPIONATE;FORMOTEROL FUMARATE] [Concomitant]
     Dosage: 2X1 PUFF
  4. OMEPRAZOLE. [Concomitant]
     Active Substance: OMEPRAZOLE
     Dosage: 40 MG ONCE PER DAY
  5. REMSIMA [Suspect]
     Active Substance: INFLIXIMAB
     Dosage: 400 MILLIGRAM EVERY EIGHT WEEKS FOR A YEAR (MOST CURRENT INFUSION DATE: 22 MAY 2020, INFUSION LASTED
     Route: 042
     Dates: start: 201905
  6. REMSIMA [Suspect]
     Active Substance: INFLIXIMAB
     Dosage: INFUSION ASSOCIATED WITH FIRST EPISODE OF PLEURAL EFFUSION
     Dates: start: 20200123
  7. REMSIMA [Suspect]
     Active Substance: INFLIXIMAB
     Indication: CROHN^S DISEASE
     Dosage: 300 MG EVERY 8 WEEKS
     Route: 042
     Dates: start: 201905
  8. IBUPROFEN. [Concomitant]
     Active Substance: IBUPROFEN
     Dosage: IN CASE OF RELAPSES

REACTIONS (3)
  - Pleural effusion [Recovering/Resolving]
  - Overdose [Unknown]
  - Pericardial effusion [Recovering/Resolving]

NARRATIVE: CASE EVENT DATE: 202002
